FAERS Safety Report 13241722 (Version 1)
Quarter: 2017Q1

REPORT INFORMATION
  Report Type: Spontaneous
  Country: US (occurrence: US)
  Receive Date: 20170217
  Receipt Date: 20170217
  Transmission Date: 20170428
  Serious: No
  Sender: FDA-Public Use
  Company Number: US-PFIZER INC-2017063670

PATIENT
  Age: 52 Year
  Sex: Female

DRUGS (1)
  1. GEODON [Suspect]
     Active Substance: ZIPRASIDONE HYDROCHLORIDE\ZIPRASIDONE MESYLATE
     Dosage: UNK

REACTIONS (7)
  - Pre-existing condition improved [Unknown]
  - Dyskinesia [Unknown]
  - Restlessness [Unknown]
  - Therapeutic response unexpected [Unknown]
  - Emotional poverty [Unknown]
  - Lack of spontaneous speech [Unknown]
  - Feeling abnormal [Unknown]
